FAERS Safety Report 9405352 (Version 2)
Quarter: 2013Q3

REPORT INFORMATION
  Report Type: Spontaneous
  Country: US (occurrence: US)
  Receive Date: 20130717
  Receipt Date: 20130808
  Transmission Date: 20140515
  Serious: Yes (Death)
  Sender: FDA-Public Use
  Company Number: US-009507513-1307USA006960

PATIENT
  Age: 51 Year
  Sex: Female

DRUGS (2)
  1. TEMODAR [Suspect]
     Indication: GLIOBLASTOMA
     Dosage: 20 MG, UNK
     Route: 048
     Dates: start: 201212
  2. TEMODAR [Suspect]
     Dosage: 5 MG, UNK
     Route: 048
     Dates: start: 201212

REACTIONS (1)
  - Disease progression [Fatal]
